FAERS Safety Report 6272642-2 (Version None)
Quarter: 2009Q3

REPORT INFORMATION
  Report Type: 
  Country: None (occurrence: None)
  Receive Date: 20090717
  Receipt Date: 20090709
  Transmission Date: 20100115
  Serious: Yes (Hospitalization, Other)
  Sender: FDA-Public Use
  Company Number: GB-ABBOTT-09P-167-0576280-00

PATIENT
  Sex: Female
  Weight: 108.8 kg

DRUGS (10)
  1. HUMIRA [Suspect]
     Indication: RHEUMATOID ARTHRITIS
     Route: 058
     Dates: start: 20080815, end: 20090415
  2. LEFLUNOMIDE [Concomitant]
     Indication: RHEUMATOID ARTHRITIS
     Dates: start: 20090114, end: 20090415
  3. NAPROXEN [Concomitant]
     Indication: RHEUMATOID ARTHRITIS
  4. PERINDOPRIL [Concomitant]
     Indication: HYPERTENSION
     Dates: start: 20090114
  5. LANSOPRAZOLE [Concomitant]
     Indication: PROPHYLAXIS AGAINST GASTROINTESTINAL ULCER
  6. SIMVASTATIN [Concomitant]
     Indication: HYPERCHOLESTEROLAEMIA
     Dates: start: 20090114
  7. INSULIN [Concomitant]
     Indication: DRUG USE FOR UNKNOWN INDICATION
  8. NAPROSYN [Concomitant]
     Indication: DRUG USE FOR UNKNOWN INDICATION
     Dates: start: 20090114
  9. AMLODIPINE [Concomitant]
     Indication: DRUG USE FOR UNKNOWN INDICATION
  10. ADCAL [Concomitant]
     Indication: DRUG USE FOR UNKNOWN INDICATION

REACTIONS (6)
  - BLOOD PRESSURE FLUCTUATION [None]
  - HYDRONEPHROSIS [None]
  - OEDEMA PERIPHERAL [None]
  - PYELONEPHRITIS [None]
  - RENAL FAILURE ACUTE [None]
  - URINARY TRACT INFECTION [None]
